FAERS Safety Report 4762234-6 (Version None)
Quarter: 2005Q3

REPORT INFORMATION
  Report Type: 
  Country: None (occurrence: None)
  Receive Date: 20050906
  Receipt Date: 20050906
  Transmission Date: 20060218
  Serious: Yes (Life-Threatening)
  Sender: FDA-Public Use
  Company Number: None

PATIENT
  Sex: Female
  Weight: 59.8748 kg

DRUGS (3)
  1. EFFEXOR XR [Suspect]
     Indication: MAJOR DEPRESSION
     Dosage: 37.5-112.5 MG PO QD
     Route: 048
     Dates: start: 20011217, end: 20020111
  2. EFFEXOR XR [Suspect]
     Dosage: 150-225 MG PO QD
     Route: 048
     Dates: start: 20020112, end: 20020213
  3. AUGMENTIN [Concomitant]

REACTIONS (1)
  - INCISION SITE HAEMORRHAGE [None]
